FAERS Safety Report 4994747-6 (Version None)
Quarter: 2006Q2

REPORT INFORMATION
  Report Type: 
  Country: None (occurrence: None)
  Receive Date: 20060505
  Receipt Date: 20060327
  Transmission Date: 20061013
  Serious: Yes (Hospitalization)
  Sender: FDA-Public Use
  Company Number: JP-ABBOTT-06P-087-0329116-00

PATIENT
  Sex: Male
  Weight: 60 kg

DRUGS (4)
  1. CEFZON [Suspect]
     Indication: INFECTION PROPHYLAXIS
     Route: 048
     Dates: start: 20040222, end: 20040222
  2. LOXOPROFEN SODIUM [Suspect]
     Indication: INFLAMMATION
     Route: 048
     Dates: start: 20040222, end: 20040222
  3. POVIDONE IODINE [Concomitant]
     Indication: DRUG USE FOR UNKNOWN INDICATION
     Dates: start: 20040222, end: 20040223
  4. DEQUALINIUM CHLORIDE [Concomitant]
     Indication: DRUG USE FOR UNKNOWN INDICATION
     Dates: start: 20040222, end: 20040223

REACTIONS (3)
  - FEELING HOT [None]
  - PARAESTHESIA ORAL [None]
  - URTICARIA [None]
